FAERS Safety Report 6255767-7 (Version None)
Quarter: 2009Q3

REPORT INFORMATION
  Report Type: 
  Country: None (occurrence: None)
  Receive Date: 20090702
  Receipt Date: 20090626
  Transmission Date: 20100115
  Serious: Yes (Other)
  Sender: FDA-Public Use
  Company Number: US-JNJCH-2009017702

PATIENT
  Age: 27 Year
  Sex: Female
  Weight: 65.8 kg

DRUGS (1)
  1. ZYRTEC [Suspect]
     Indication: HYPERSENSITIVITY
     Dosage: DAILY DOSE:10MG-TEXT:ONE TABLET AT NIGHT
     Route: 048

REACTIONS (1)
  - WITHDRAWAL SYNDROME [None]
